FAERS Safety Report 15595892 (Version 1)
Quarter: 2018Q4

REPORT INFORMATION
  Report Type: Report from Study
  Country: CA (occurrence: CA)
  Receive Date: 20181107
  Receipt Date: 20181107
  Transmission Date: 20190205
  Serious: Yes (Other)
  Sender: FDA-Public Use
  Company Number: CA-JNJFOC-20181045856

PATIENT
  Age: 8 Year
  Sex: Male
  Weight: 32 kg

DRUGS (2)
  1. REMICADE [Suspect]
     Active Substance: INFLIXIMAB
     Indication: COLITIS ULCERATIVE
     Dosage: STRENGTH = 100 MG
     Route: 042
     Dates: start: 20170126
  2. REMICADE [Suspect]
     Active Substance: INFLIXIMAB
     Indication: COLITIS ULCERATIVE
     Dosage: DOSE ALSO REPORTED AS 10 MG/KG
     Route: 042

REACTIONS (4)
  - Product use issue [Unknown]
  - Abdominal pain [Unknown]
  - Off label use [Unknown]
  - Haematochezia [Unknown]

NARRATIVE: CASE EVENT DATE: 20170126
